FAERS Safety Report 12841564 (Version 3)
Quarter: 2016Q4

REPORT INFORMATION
  Report Type: Report from Study
  Country: CL (occurrence: CL)
  Receive Date: 20161012
  Receipt Date: 20161023
  Transmission Date: 20170207
  Serious: Yes (Hospitalization)
  Sender: FDA-Public Use
  Company Number: CL-B.I. PHARMACEUTICALS,INC./RIDGEFIELD-2015-BI-67178BI

PATIENT
  Age: 82 Year
  Sex: Male
  Weight: 65 kg

DRUGS (5)
  1. ASPIRIN. [Concomitant]
     Active Substance: ASPIRIN
     Indication: HYPERTENSION
     Route: 048
     Dates: start: 1988
  2. BLINDED LINAGLIPTIN [Suspect]
     Active Substance: LINAGLIPTIN
     Indication: TYPE 2 DIABETES MELLITUS
     Route: 048
     Dates: start: 20150311, end: 20151115
  3. INSULINE [Concomitant]
     Active Substance: INSULIN NOS
     Indication: DIABETES MELLITUS
     Route: 058
     Dates: start: 2014
  4. ISOSORBIDE. [Concomitant]
     Active Substance: ISOSORBIDE
     Indication: CARDIAC FAILURE
     Route: 048
     Dates: start: 2014
  5. HIDRALAZINE [Concomitant]
     Indication: CARDIAC FAILURE
     Route: 048
     Dates: start: 2014

REACTIONS (2)
  - Sepsis [Recovered/Resolved]
  - Paraneoplastic pleural effusion [Recovered/Resolved]

NARRATIVE: CASE EVENT DATE: 20151116
